FAERS Safety Report 6083942-3 (Version None)
Quarter: 2009Q1

REPORT INFORMATION
  Report Type: 
  Country: None (occurrence: None)
  Receive Date: 20090219
  Receipt Date: 20090210
  Transmission Date: 20090719
  Serious: Yes (Death, Other)
  Sender: FDA-Public Use
  Company Number: US-PFIZER INC-2009168979

PATIENT
  Sex: Male
  Weight: 113.38 kg

DRUGS (4)
  1. LIPITOR [Suspect]
     Indication: CORONARY ARTERY OCCLUSION
  2. PLAVIX [Suspect]
     Indication: CORONARY ARTERY OCCLUSION
  3. INHALED HUMAN INSULIN [Concomitant]
  4. BYETTA [Concomitant]

REACTIONS (3)
  - CORONARY ARTERY OCCLUSION [None]
  - MYOCARDIAL INFARCTION [None]
  - STENT OCCLUSION [None]
